FAERS Safety Report 7482943-8 (Version None)
Quarter: 2011Q2

REPORT INFORMATION
  Report Type: 
  Country: None (occurrence: None)
  Receive Date: 20110516
  Receipt Date: 20110510
  Transmission Date: 20111010
  Serious: Yes (Hospitalization)
  Sender: FDA-Public Use
  Company Number: GR-PFIZER INC-2010085055

PATIENT
  Age: 61 Year
  Sex: Female

DRUGS (3)
  1. AMPICILLIN AND SULBACTAM [Suspect]
     Indication: PROPHYLAXIS
     Dosage: 1.5G 3XDAY
     Route: 042
     Dates: start: 20100303, end: 20100305
  2. BRIKLIN [Concomitant]
     Indication: PROPHYLAXIS
     Dosage: 500 DF, 2X/DAY
     Route: 042
     Dates: start: 20100305
  3. INNOHEP [Suspect]
     Indication: THROMBOSIS PROPHYLAXIS
     Dosage: 0.35 DF, 1X/DAY
     Route: 058
     Dates: start: 20100305

REACTIONS (1)
  - THROMBOCYTOPENIA [None]
